FAERS Safety Report 26076842 (Version 1)
Quarter: 2025Q4

REPORT INFORMATION
  Report Type: Spontaneous
  Country: EU (occurrence: EU)
  Receive Date: 20251121
  Receipt Date: 20251121
  Transmission Date: 20260118
  Serious: Yes (Other)
  Sender: MYLAN
  Company Number: EU-MYLANLABS-2025M1097817

PATIENT
  Age: 22 Year
  Sex: Female

DRUGS (16)
  1. AZELASTINE HYDROCHLORIDE\FLUTICASONE PROPIONATE [Suspect]
     Active Substance: AZELASTINE HYDROCHLORIDE\FLUTICASONE PROPIONATE
     Indication: Chronic rhinosinusitis without nasal polyps
     Dosage: UNK
  2. AZELASTINE HYDROCHLORIDE\FLUTICASONE PROPIONATE [Suspect]
     Active Substance: AZELASTINE HYDROCHLORIDE\FLUTICASONE PROPIONATE
     Indication: Asthma
     Dosage: UNK
     Route: 045
  3. AZELASTINE HYDROCHLORIDE\FLUTICASONE PROPIONATE [Suspect]
     Active Substance: AZELASTINE HYDROCHLORIDE\FLUTICASONE PROPIONATE
     Dosage: UNK
     Route: 045
  4. AZELASTINE HYDROCHLORIDE\FLUTICASONE PROPIONATE [Suspect]
     Active Substance: AZELASTINE HYDROCHLORIDE\FLUTICASONE PROPIONATE
     Dosage: UNK
  5. MONTELUKAST [Suspect]
     Active Substance: MONTELUKAST
     Indication: Asthma
     Dosage: 10 MILLIGRAM
  6. MONTELUKAST [Suspect]
     Active Substance: MONTELUKAST
     Indication: Chronic rhinosinusitis without nasal polyps
     Dosage: 10 MILLIGRAM
     Route: 065
  7. MONTELUKAST [Suspect]
     Active Substance: MONTELUKAST
     Dosage: 10 MILLIGRAM
     Route: 065
  8. MONTELUKAST [Suspect]
     Active Substance: MONTELUKAST
     Dosage: 10 MILLIGRAM
  9. BILASTINE [Suspect]
     Active Substance: BILASTINE
     Indication: Chronic rhinosinusitis without nasal polyps
     Dosage: 20 MILLIGRAM
  10. BILASTINE [Suspect]
     Active Substance: BILASTINE
     Indication: Asthma
     Dosage: 20 MILLIGRAM
     Route: 065
  11. BILASTINE [Suspect]
     Active Substance: BILASTINE
     Dosage: 20 MILLIGRAM
     Route: 065
  12. BILASTINE [Suspect]
     Active Substance: BILASTINE
     Dosage: 20 MILLIGRAM
  13. FLUTICASONE FUROATE\VILANTEROL TRIFENATATE [Suspect]
     Active Substance: FLUTICASONE FUROATE\VILANTEROL TRIFENATATE
     Indication: Asthma
     Dosage: UNK
  14. FLUTICASONE FUROATE\VILANTEROL TRIFENATATE [Suspect]
     Active Substance: FLUTICASONE FUROATE\VILANTEROL TRIFENATATE
     Indication: Chronic rhinosinusitis without nasal polyps
     Dosage: UNK
     Route: 065
  15. FLUTICASONE FUROATE\VILANTEROL TRIFENATATE [Suspect]
     Active Substance: FLUTICASONE FUROATE\VILANTEROL TRIFENATATE
     Dosage: UNK
     Route: 065
  16. FLUTICASONE FUROATE\VILANTEROL TRIFENATATE [Suspect]
     Active Substance: FLUTICASONE FUROATE\VILANTEROL TRIFENATATE
     Dosage: UNK

REACTIONS (7)
  - Drug ineffective [Unknown]
  - Eosinophilic granulomatosis with polyangiitis [Recovered/Resolved]
  - Myopericarditis [Recovering/Resolving]
  - Mononeuropathy [Recovered/Resolved]
  - Pleural effusion [Recovered/Resolved]
  - Paranasal sinus inflammation [Unknown]
  - Sinus polyp [Unknown]

NARRATIVE: CASE EVENT DATE: 20210101
